FAERS Safety Report 12681931 (Version 4)
Quarter: 2018Q1

REPORT INFORMATION
  Report Type: Spontaneous
  Country: US (occurrence: US)
  Receive Date: 20160824
  Receipt Date: 20180221
  Transmission Date: 20180508
  Serious: Yes (Hospitalization)
  Sender: FDA-Public Use
  Company Number: US-LUNDBECK-DKLU2018081

PATIENT
  Age: 68 Year
  Sex: Female

DRUGS (15)
  1. NORTHERA [Suspect]
     Active Substance: DROXIDOPA
     Route: 048
     Dates: start: 20180101
  2. CARBIDOPA-LEVODOPA [Concomitant]
     Active Substance: CARBIDOPA\LEVODOPA
     Indication: PRODUCT USED FOR UNKNOWN INDICATION
     Route: 065
  3. SERTRALINE [Concomitant]
     Active Substance: SERTRALINE HYDROCHLORIDE
     Indication: PRODUCT USED FOR UNKNOWN INDICATION
     Route: 065
  4. NORTHERA [Suspect]
     Active Substance: DROXIDOPA
     Route: 048
     Dates: start: 201606
  5. FLUDROCORTISONE [Concomitant]
     Active Substance: FLUDROCORTISONE
     Indication: PRODUCT USED FOR UNKNOWN INDICATION
     Route: 065
  6. POTASSIUM CHLORIDE. [Concomitant]
     Active Substance: POTASSIUM CHLORIDE
     Indication: PRODUCT USED FOR UNKNOWN INDICATION
     Route: 065
  7. TRAMADOL. [Concomitant]
     Active Substance: TRAMADOL
     Indication: PRODUCT USED FOR UNKNOWN INDICATION
     Route: 065
  8. NORTHERA [Suspect]
     Active Substance: DROXIDOPA
     Dosage: AT LEAST 3 HOURS BEFORE BEDTIME
     Route: 048
     Dates: start: 201606
  9. NORTHERA [Suspect]
     Active Substance: DROXIDOPA
     Route: 048
     Dates: start: 201606
  10. NORTHERA [Suspect]
     Active Substance: DROXIDOPA
     Indication: PARKINSON^S DISEASE
     Route: 048
     Dates: start: 201606
  11. NORTHERA [Suspect]
     Active Substance: DROXIDOPA
     Route: 048
     Dates: start: 201606
  12. CIPROFLOXACIN. [Concomitant]
     Active Substance: CIPROFLOXACIN
     Indication: PRODUCT USED FOR UNKNOWN INDICATION
     Route: 065
  13. TEMAZEPAM. [Concomitant]
     Active Substance: TEMAZEPAM
     Indication: PRODUCT USED FOR UNKNOWN INDICATION
     Route: 065
  14. VESICARE [Concomitant]
     Active Substance: SOLIFENACIN SUCCINATE
     Indication: PRODUCT USED FOR UNKNOWN INDICATION
     Route: 065
  15. PANTOPRAZOLE [Concomitant]
     Active Substance: PANTOPRAZOLE
     Indication: PRODUCT USED FOR UNKNOWN INDICATION
     Route: 065

REACTIONS (3)
  - Hip fracture [Unknown]
  - Fall [Recovered/Resolved with Sequelae]
  - Inappropriate schedule of drug administration [Unknown]

NARRATIVE: CASE EVENT DATE: 20160819
